FAERS Safety Report 6017906-2 (Version None)
Quarter: 2008Q4

REPORT INFORMATION
  Report Type: 
  Country: None (occurrence: None)
  Receive Date: 20081223
  Receipt Date: 20081211
  Transmission Date: 20090506
  Serious: Yes (Other)
  Sender: FDA-Public Use
  Company Number: KR-PFIZER INC-2008155579

PATIENT

DRUGS (8)
  1. LINEZOLID [Suspect]
     Indication: TUBERCULOSIS
     Dosage: 300 MG, 2X/DAY
  2. STREPTOMYCIN [Concomitant]
  3. PROTHIONAMIDE [Concomitant]
  4. CYCLOSERINE [Concomitant]
  5. PARA AMINOSALICYLIC ACID [Concomitant]
  6. MOXIFLOXACIN [Concomitant]
  7. AMOXICILLIN + CLAVULANATE POTASSIUM [Concomitant]
  8. CLARITHROMYCIN [Concomitant]

REACTIONS (2)
  - NEUROPATHY PERIPHERAL [None]
  - OPTIC NEUROPATHY [None]
